FAERS Safety Report 6942942-9 (Version None)
Quarter: 2010Q3

REPORT INFORMATION
  Report Type: 
  Country: None (occurrence: None)
  Receive Date: 20100825
  Receipt Date: 20100825
  Transmission Date: 20110219
  Serious: No
  Sender: FDA-Public Use
  Company Number: None

PATIENT
  Sex: Female
  Weight: 58.0604 kg

DRUGS (1)
  1. OCELLA 28 [Suspect]
     Dosage: 1 TABLET DAILY ORAL
     Route: 048
     Dates: start: 20100815, end: 20100817

REACTIONS (3)
  - ABDOMINAL DISCOMFORT [None]
  - NIGHT SWEATS [None]
  - VOMITING [None]
